FAERS Safety Report 7963975-X (Version None)
Quarter: 2011Q4

REPORT INFORMATION
  Report Type: 
  Country: None (occurrence: None)
  Receive Date: 20111208
  Receipt Date: 20111027
  Transmission Date: 20120403
  Serious: No
  Sender: FDA-Public Use
  Company Number: US-BAYER-2011-106113

PATIENT
  Sex: Female

DRUGS (3)
  1. ALEVE-D SINUS + COLD [Suspect]
  2. ZOVIA 1/35E-21 [Concomitant]
  3. EVAILE [Concomitant]

REACTIONS (2)
  - NASAL OBSTRUCTION [None]
  - SENSATION OF PRESSURE [None]
